FAERS Safety Report 23087248 (Version 1)
Quarter: 2023Q4

REPORT INFORMATION
  Report Type: Spontaneous
  Country: US (occurrence: US)
  Receive Date: 20231020
  Receipt Date: 20231020
  Transmission Date: 20240110
  Serious: No
  Sender: FDA-Public Use
  Company Number: US-GLENMARK PHARMACEUTICALS-2023GMK081767

PATIENT

DRUGS (3)
  1. ESTRADIOL [Suspect]
     Active Substance: ESTRADIOL
     Indication: Menopause
     Dosage: 10 MCG, FIRST DOSE
     Route: 067
     Dates: start: 20230324
  2. ESTRADIOL [Suspect]
     Active Substance: ESTRADIOL
     Indication: Postmenopause
     Dosage: 10 MCG, SECOND DOSE
     Route: 067
     Dates: start: 20230328
  3. ESTRADIOL [Suspect]
     Active Substance: ESTRADIOL
     Dosage: 10 MCG, THIRD DOSE
     Route: 067
     Dates: start: 20230331, end: 2023

REACTIONS (4)
  - Vaginal discharge [Recovered/Resolved]
  - Vulvovaginal pruritus [Recovered/Resolved]
  - Vulvovaginal mycotic infection [Recovered/Resolved]
  - Product quality issue [Unknown]

NARRATIVE: CASE EVENT DATE: 20230301
